FAERS Safety Report 5081180-4 (Version None)
Quarter: 2006Q3

REPORT INFORMATION
  Report Type: 
  Country: None (occurrence: None)
  Receive Date: 20060810
  Receipt Date: 20060803
  Transmission Date: 20061208
  Serious: Yes (Hospitalization)
  Sender: FDA-Public Use
  Company Number: 2006-01504

PATIENT
  Age: 68 Year
  Sex: Female
  Weight: 98.3 kg

DRUGS (6)
  1. VELCADE [Suspect]
     Indication: MALIGNANT MELANOMA
     Dosage: 1.60 MG/M2, IV BOLUS
     Route: 040
     Dates: start: 20060411, end: 20060612
  2. DECARBAZINE              (DECARBAZINE) [Suspect]
     Indication: MALIGNANT MELANOMA
     Dosage: 330.00 MG/M2, IV DRIP
     Route: 041
     Dates: end: 20060612
  3. DYAZIDE [Concomitant]
  4. HYZAAR [Concomitant]
  5. LEVOTHYROXINE SODIUM [Concomitant]
  6. POTASSIUM CHLORIDE [Concomitant]

REACTIONS (9)
  - ATRIAL FIBRILLATION [None]
  - BLOOD CHLORIDE DECREASED [None]
  - CONSTIPATION [None]
  - DIARRHOEA [None]
  - FATIGUE [None]
  - HYPOKALAEMIA [None]
  - INAPPROPRIATE ANTIDIURETIC HORMONE SECRETION [None]
  - PLATELET COUNT DECREASED [None]
  - RESPIRATORY RATE INCREASED [None]
